FAERS Safety Report 5530793-1 (Version None)
Quarter: 2007Q4

REPORT INFORMATION
  Report Type: 
  Country: None (occurrence: None)
  Receive Date: 20071130
  Receipt Date: 20071127
  Transmission Date: 20080405
  Serious: Yes (Hospitalization, Other)
  Sender: FDA-Public Use
  Company Number: US-MERCK-0711USA05057

PATIENT
  Age: 62 Year
  Sex: Male

DRUGS (7)
  1. DECADRON [Suspect]
     Indication: MULTIPLE MYELOMA
     Route: 048
     Dates: start: 20050228, end: 20050101
  2. THALOMID [Suspect]
     Indication: MULTIPLE MYELOMA
     Route: 047
     Dates: start: 20050301, end: 20050304
  3. SYNTHROID [Concomitant]
     Route: 065
  4. ALTACE [Concomitant]
     Route: 065
  5. ATENOLOL [Concomitant]
     Route: 065
  6. PAXIL [Concomitant]
     Route: 065
  7. PREVACID [Concomitant]
     Route: 065

REACTIONS (6)
  - ANXIETY [None]
  - DEPRESSION [None]
  - DISEASE PROGRESSION [None]
  - INSOMNIA [None]
  - PSYCHOTIC DISORDER [None]
  - SUICIDAL IDEATION [None]
